FAERS Safety Report 6999683-1 (Version None)
Quarter: 2010Q3

REPORT INFORMATION
  Report Type: 
  Country: None (occurrence: None)
  Receive Date: 20100920
  Receipt Date: 20100520
  Transmission Date: 20110219
  Serious: No
  Sender: FDA-Public Use
  Company Number: US-ASTRAZENECA-2008UW20919

PATIENT
  Age: 58 Year
  Sex: Female
  Weight: 66.7 kg

DRUGS (4)
  1. SEROQUEL [Suspect]
     Indication: BIPOLAR DISORDER
     Route: 048
     Dates: start: 20060101
  2. SEROQUEL [Suspect]
     Indication: FIBROMYALGIA
     Route: 048
     Dates: start: 20060101
  3. LIDODERM [Concomitant]
     Dosage: 5 %
     Route: 050
  4. PRILOSEC [Concomitant]
     Route: 048

REACTIONS (2)
  - DYSPHAGIA [None]
  - MUSCLE TWITCHING [None]
